FAERS Safety Report 5064791-1 (Version None)
Quarter: 2006Q3

REPORT INFORMATION
  Report Type: 
  Country: None (occurrence: None)
  Receive Date: 20060728
  Receipt Date: 20060717
  Transmission Date: 20061208
  Serious: Yes (Other)
  Sender: FDA-Public Use
  Company Number: PHNR2006AU00936

PATIENT
  Sex: Female

DRUGS (5)
  1. WARFARIN SODIUM [Interacting]
     Dosage: DAILY
     Route: 065
  2. ASPIRIN [Concomitant]
     Dosage: DAILY
     Route: 065
  3. DIURETICS [Concomitant]
     Route: 065
  4. PREXIGE [Concomitant]
  5. VOLTAREN [Suspect]
     Indication: OSTEOARTHRITIS
     Route: 048

REACTIONS (4)
  - CARDIAC OPERATION [None]
  - CORONARY ARTERY BYPASS [None]
  - HEART VALVE REPLACEMENT [None]
  - INTERNATIONAL NORMALISED RATIO DECREASED [None]
